FAERS Safety Report 8236370-6 (Version None)
Quarter: 2012Q1

REPORT INFORMATION
  Report Type: 
  Country: None (occurrence: None)
  Receive Date: 20120327
  Receipt Date: 20120320
  Transmission Date: 20120608
  Serious: Yes (Other)
  Sender: FDA-Public Use
  Company Number: US-JNJFOC-20120310519

PATIENT
  Sex: Male
  Weight: 83.92 kg

DRUGS (3)
  1. PAXIL [Concomitant]
     Indication: ANTIDEPRESSANT THERAPY
     Dates: start: 20090101
  2. STELARA [Suspect]
     Indication: PSORIATIC ARTHROPATHY
     Route: 058
     Dates: start: 20111101, end: 20120101
  3. LAMICTAL [Concomitant]
     Indication: AFFECTIVE DISORDER
     Dates: start: 20090101

REACTIONS (4)
  - CROHN'S DISEASE [None]
  - EATING DISORDER [None]
  - VOMITING [None]
  - OFF LABEL USE [None]
